FAERS Safety Report 6823301-6 (Version None)
Quarter: 2010Q3

REPORT INFORMATION
  Report Type: 
  Country: None (occurrence: None)
  Receive Date: 20100708
  Receipt Date: 20100628
  Transmission Date: 20110219
  Serious: Yes (Hospitalization)
  Sender: FDA-Public Use
  Company Number: GB-AMGEN-QUU200623

PATIENT
  Age: 76 Year
  Sex: Female
  Weight: 43 kg

DRUGS (3)
  1. ENBREL [Suspect]
     Indication: RHEUMATOID ARTHRITIS
     Route: 058
     Dates: start: 20060103, end: 20061005
  2. METHOTREXATE [Concomitant]
     Indication: RHEUMATOID ARTHRITIS
     Dosage: 10MG (FREQUENCY UNKNOWN)
     Route: 048
  3. FOLIC ACID [Concomitant]
     Indication: RHEUMATOID ARTHRITIS
     Dosage: 5MG FREQUENCY UNKNOWN

REACTIONS (2)
  - CHOLECYSTITIS [None]
  - LOWER RESPIRATORY TRACT INFECTION [None]
